FAERS Safety Report 7433024-0 (Version None)
Quarter: 2011Q2

REPORT INFORMATION
  Report Type: 
  Country: None (occurrence: None)
  Receive Date: 20110422
  Receipt Date: 20110413
  Transmission Date: 20111010
  Serious: Yes (Hospitalization, Disabling, Other)
  Sender: FDA-Public Use
  Company Number: US-ASTRAZENECA-2010SE32294

PATIENT
  Age: 78 Year
  Sex: Female
  Weight: 71.2 kg

DRUGS (182)
  1. ACCOLATE [Suspect]
     Route: 048
     Dates: start: 20081024, end: 20090203
  2. OMEPRAZOLE [Concomitant]
     Route: 048
     Dates: start: 20090203, end: 20091123
  3. FUROSEMIDE [Concomitant]
     Route: 048
     Dates: start: 20090804, end: 20100329
  4. HYZAAR [Concomitant]
     Dosage: 12.5/50 MG ONCE A ADY
     Route: 048
     Dates: start: 20080724, end: 20080724
  5. LORAZEPAM [Concomitant]
     Dosage: ONE-TWO TABLETS EVERY DAY
     Route: 048
     Dates: start: 20081204, end: 20090804
  6. LORAZEPAM [Concomitant]
     Dosage: ONE-TWO TABLETS EVERY DAY
     Route: 048
     Dates: start: 20090921, end: 20091111
  7. LORAZEPAM [Concomitant]
     Dosage: ONE-TWO TABLETS EVERY DAY
     Route: 048
     Dates: start: 20100409, end: 20100427
  8. LORAZEPAM [Concomitant]
     Dosage: 1-2 TABLETS ONCE A DAY
     Route: 048
     Dates: start: 20100706, end: 20100910
  9. AMITRIPTYLINE HCL [Concomitant]
     Route: 048
     Dates: start: 20090504, end: 20090804
  10. AMOXICILLIN [Concomitant]
     Route: 048
     Dates: start: 20080806, end: 20090203
  11. POTASSIUM CHLORIDE [Concomitant]
     Route: 048
     Dates: start: 20080903, end: 20081018
  12. CIPROFLOXACIN [Concomitant]
     Route: 048
     Dates: start: 20081219, end: 20090203
  13. DARVOCET-N 50 [Concomitant]
     Route: 048
     Dates: start: 20090602, end: 20090804
  14. DARVOCET-N 50 [Concomitant]
     Dosage: ONE TABLET FOUR TO SIX HOURS
     Route: 048
     Dates: start: 20090728, end: 20090804
  15. DARVOCET-N 50 [Concomitant]
     Route: 048
     Dates: start: 20100706, end: 20100903
  16. DICYCLOMINE [Concomitant]
     Route: 048
     Dates: start: 20091110, end: 20100706
  17. SINGULAIR [Concomitant]
     Route: 048
     Dates: start: 20100427, end: 20100903
  18. LEVOTHYROXINE SODIUM [Concomitant]
     Route: 048
     Dates: start: 20100901
  19. ACCOLATE [Suspect]
     Route: 048
     Dates: start: 20100916
  20. IMDUR [Concomitant]
     Route: 048
     Dates: start: 20080724, end: 20080724
  21. FUROSEMIDE [Concomitant]
     Route: 048
     Dates: start: 20080724, end: 20090203
  22. FUROSEMIDE [Concomitant]
     Route: 048
     Dates: start: 20100329, end: 20100329
  23. FUROSEMIDE [Concomitant]
     Route: 048
     Dates: start: 20100901
  24. ISOSORBIDE MONONITRATE [Concomitant]
     Route: 048
     Dates: start: 20080724, end: 20081008
  25. PROPOXYPHENE-ACETAMIN NAPSYLATE [Concomitant]
     Route: 048
     Dates: start: 20080912, end: 20081103
  26. PROPOXYPHENE-ACETAMIN NAPSYLATE [Concomitant]
     Route: 048
     Dates: start: 20090921, end: 20091123
  27. LORAZEPAM [Concomitant]
     Route: 048
     Dates: start: 20080724, end: 20080822
  28. LORAZEPAM [Concomitant]
     Dosage: 1-2 TABLETS ONCE A DAY AS NEEDED
     Route: 048
     Dates: start: 20090702, end: 20100814
  29. LORAZEPAM [Concomitant]
     Dosage: ONE-TWO TABLETS EVERY DAY
     Route: 048
     Dates: start: 20091111, end: 20100104
  30. LORAZEPAM [Concomitant]
     Dosage: 1-2 TABLETS ONCE A DAY
     Route: 048
     Dates: start: 20100910
  31. LORAZEPAM [Concomitant]
     Dosage: 1-2 TABLETS ONCE A DAY AS NEEDED
     Route: 048
     Dates: start: 20100910
  32. AMITRIPTYLINE HCL [Concomitant]
     Route: 048
     Dates: start: 20080915, end: 20081103
  33. AMITRIPTYLINE HCL [Concomitant]
     Route: 048
     Dates: start: 20090107, end: 20090804
  34. AMITRIPTYLINE HCL [Concomitant]
     Route: 048
     Dates: start: 20100901
  35. AMOXIL [Concomitant]
     Dosage: 4 DF AS ONE DOSE AS DIRECTED
     Route: 048
     Dates: start: 20090522, end: 20090804
  36. AMOXICILLIN [Concomitant]
     Route: 048
     Dates: start: 20081103, end: 20090203
  37. AMOXICILLIN [Concomitant]
     Route: 048
     Dates: start: 20090429, end: 20090804
  38. AMOXICILLIN [Concomitant]
     Route: 048
     Dates: start: 20100126, end: 20100427
  39. AMOXICILLIN [Concomitant]
     Route: 048
     Dates: start: 20100126, end: 20100427
  40. ALBUTEROL SULFATE HF [Concomitant]
     Dosage: AS NEEDED
     Route: 055
     Dates: start: 20080820, end: 20091005
  41. POTASSIUM CHLORIDE [Concomitant]
     Route: 048
     Dates: start: 20090203, end: 20090309
  42. POTASSIUM CHLORIDE [Concomitant]
     Route: 048
     Dates: start: 20091110, end: 20100210
  43. POTASSIUM CHLORIDE [Concomitant]
     Route: 048
     Dates: start: 20100210
  44. ALUPENT [Concomitant]
     Dates: start: 20080920, end: 20081117
  45. DARVOCET-N 50 [Concomitant]
     Route: 048
     Dates: start: 20090417, end: 20090804
  46. DUONEB [Concomitant]
     Dosage: 2.5/0.5 MG/3 4 TIMES A DAY
     Dates: start: 20100209
  47. TESSALON [Concomitant]
     Indication: COUGH
     Route: 048
     Dates: start: 20091005, end: 20091021
  48. TESSALON [Concomitant]
     Route: 048
     Dates: start: 20091021, end: 20091110
  49. TESSALON [Concomitant]
     Route: 048
     Dates: start: 20091123, end: 20091207
  50. DOXYCYCLINE HYCLATE [Concomitant]
     Route: 048
     Dates: start: 20091216, end: 20100427
  51. METHIMAZOLE [Concomitant]
     Route: 048
     Dates: start: 20091229, end: 20100903
  52. ACCOLATE [Suspect]
     Route: 048
     Dates: start: 20090409, end: 20091123
  53. IMDUR [Concomitant]
     Route: 048
     Dates: start: 20100802
  54. ISOSORBIDE MONONITRATE [Concomitant]
     Route: 048
     Dates: start: 20080724, end: 20080724
  55. ISOSORBIDE MONONITRATE [Concomitant]
     Route: 048
     Dates: start: 20081008, end: 20081204
  56. ISOSORBIDE MONONITRATE [Concomitant]
     Route: 048
     Dates: start: 20090302, end: 20091005
  57. PROPOXYPHENE-ACETAMIN NAPSYLATE [Concomitant]
     Route: 048
     Dates: start: 20081216, end: 20090203
  58. PROPOXYPHENE-ACETAMIN NAPSYLATE [Concomitant]
     Route: 048
     Dates: start: 20090804, end: 20090804
  59. LORAZEPAM [Concomitant]
     Route: 048
     Dates: start: 20080822, end: 20081010
  60. LORAZEPAM [Concomitant]
     Route: 048
     Dates: start: 20081010, end: 20081103
  61. LORAZEPAM [Concomitant]
     Dosage: ONE-TWO TABLETS EVERY DAY
     Route: 048
     Dates: start: 20100104, end: 20100310
  62. AMOXIL [Concomitant]
     Route: 048
     Dates: start: 20080915, end: 20090203
  63. ALBUTEROL SULFATE HF [Concomitant]
     Dosage: TWO PUFFS EVERY FOUR TO SIX HOURS
     Route: 055
     Dates: start: 20080820, end: 20091005
  64. POTASSIUM CHLORIDE [Concomitant]
     Route: 048
     Dates: start: 20081018, end: 20090203
  65. POTASSIUM CHLORIDE [Concomitant]
     Route: 048
     Dates: start: 20090309, end: 20090804
  66. PNEUMOVAX 23 [Concomitant]
     Dosage: ONE SOLUTION
     Dates: start: 20081016, end: 20090302
  67. DARVOCET-N 50 [Concomitant]
     Dosage: ONE TABLET FOUR TO SIX HOURS
     Route: 048
     Dates: start: 20090602, end: 20090804
  68. DARVOCET-N 50 [Concomitant]
     Route: 048
     Dates: start: 20101020
  69. XOPENEX HFA [Concomitant]
     Dosage: 1.25/0.5 MG/ML EVERY FOUR HOURS
     Dates: start: 20090224, end: 20090804
  70. DICYCLOMINE [Concomitant]
     Route: 048
     Dates: start: 20100706, end: 20100927
  71. ZESTORETIC [Concomitant]
     Dosage: 12.5/20 MG DAILY
     Route: 048
     Dates: start: 20090330, end: 20090804
  72. CELEXA [Concomitant]
     Route: 048
     Dates: start: 20090708, end: 20090813
  73. CELEXA [Concomitant]
     Route: 048
     Dates: start: 20090813, end: 20091109
  74. PRAVASTATIN [Concomitant]
     Route: 048
     Dates: start: 20100507, end: 20100903
  75. TESSALON [Concomitant]
     Route: 048
     Dates: start: 20091123, end: 20101207
  76. INFLUENZA VIRUS VACC [Concomitant]
     Dosage: ONCE
     Dates: start: 20100903, end: 20100903
  77. FUROSEMIDE [Concomitant]
     Route: 048
     Dates: start: 20090203, end: 20090313
  78. FUROSEMIDE [Concomitant]
     Route: 048
     Dates: start: 20100618, end: 20100618
  79. FLORA-Q [Concomitant]
     Route: 048
     Dates: start: 20080724, end: 20080724
  80. PROPOXYPHENE-ACETAMIN NAPSYLATE [Concomitant]
     Route: 048
     Dates: start: 20080808, end: 20080912
  81. PROPOXYPHENE-ACETAMIN NAPSYLATE [Concomitant]
     Route: 048
     Dates: start: 20080912, end: 20081103
  82. POTASSIUM CHLORIDE [Concomitant]
     Route: 048
     Dates: start: 20080724, end: 20090203
  83. LORAZEPAM [Concomitant]
     Dosage: ONE-TWO TABLETS EVERY DAY AS NEEDED
     Route: 048
     Dates: start: 20081204, end: 20090804
  84. LORAZEPAM [Concomitant]
     Dosage: 1-2 TABLETS ONCE A DAY AS NEEDED
     Route: 048
     Dates: start: 20090914, end: 20090921
  85. LORAZEPAM [Concomitant]
     Dosage: ONE-TWO TABLETS EVERY DAY
     Route: 048
     Dates: start: 20100310, end: 20100409
  86. AMITRIPTYLINE HCL [Concomitant]
     Route: 048
     Dates: start: 20080724, end: 20080915
  87. AMITRIPTYLINE HCL [Concomitant]
     Route: 048
     Dates: start: 20090921, end: 20091005
  88. AMOXIL [Concomitant]
     Route: 048
     Dates: start: 20080805, end: 20090203
  89. POTASSIUM CHLORIDE [Concomitant]
     Route: 048
     Dates: start: 20090112, end: 20090203
  90. POTASSIUM CHLORIDE [Concomitant]
     Route: 048
     Dates: start: 20090804, end: 20091005
  91. POTASSIUM CHLORIDE [Concomitant]
     Route: 048
     Dates: start: 20091005, end: 20100224
  92. ALUPENT [Concomitant]
     Dates: start: 20080905, end: 20080920
  93. ALUPENT [Concomitant]
     Dates: start: 20101117
  94. DARVOCET-N 50 [Concomitant]
     Indication: PAIN
     Route: 048
     Dates: start: 20090203, end: 20090325
  95. DARVOCET-N 50 [Concomitant]
     Dosage: ONE TABLET FOUR TO SIX HOURS
     Route: 048
     Dates: start: 20090203, end: 20090325
  96. DARVOCET-N 50 [Concomitant]
     Route: 048
     Dates: start: 20090728, end: 20090804
  97. DARVOCET-N 50 [Concomitant]
     Route: 048
     Dates: start: 20100706, end: 20100903
  98. ALBUTEROL [Concomitant]
     Indication: WHEEZING
     Dosage: EVERY FOUR OR SIX HOURS
     Dates: start: 20090416, end: 20090901
  99. CELEXA [Concomitant]
     Route: 048
     Dates: start: 20101120
  100. VITAMIN-MINERAL COMPOUND TAB [Concomitant]
     Dosage: ONCE A DAY
     Route: 048
     Dates: start: 20090804, end: 20100903
  101. TESSALON [Concomitant]
     Route: 048
     Dates: start: 20091021, end: 20091110
  102. DOXYCYCLINE HYCLATE [Concomitant]
     Route: 048
     Dates: start: 20091123, end: 20091207
  103. IMDUR [Concomitant]
     Route: 048
     Dates: start: 20090831, end: 20091005
  104. FUROSEMIDE [Concomitant]
     Route: 048
     Dates: start: 20090313, end: 20090804
  105. ISOSORBIDE MONONITRATE [Concomitant]
     Route: 048
     Dates: start: 20081204, end: 20090416
  106. PROPOXYPHENE-ACETAMIN NAPSYLATE [Concomitant]
     Indication: PAIN
     Route: 048
     Dates: start: 20080724, end: 20080808
  107. PROPOXYPHENE-ACETAMIN NAPSYLATE [Concomitant]
     Route: 048
     Dates: start: 20081103, end: 20081216
  108. LORAZEPAM [Concomitant]
     Dosage: 1-2 TABLETS ONCE A DAY
     Route: 048
     Dates: start: 20090522, end: 20090804
  109. LORAZEPAM [Concomitant]
     Dosage: ONE-TWO TABLETS EVERY DAY
     Route: 048
     Dates: start: 20090702, end: 20090814
  110. POTASSIUM CHLORIDE [Concomitant]
     Route: 048
     Dates: start: 20091021, end: 20091123
  111. DARVOCET-N 50 [Concomitant]
     Dosage: ONE TABLET FOUR TO SIX HOURS
     Route: 048
     Dates: start: 20090417, end: 20090804
  112. XOPENEX HFA [Concomitant]
     Indication: BRONCHIAL HYPERREACTIVITY
     Dates: start: 20090203, end: 20090416
  113. ALBUTEROL [Concomitant]
     Dosage: ONE VIAL EVERY FOUR HOURS
     Dates: start: 20100901
  114. METHIMAZOLE [Concomitant]
     Route: 048
     Dates: start: 20091207, end: 20091229
  115. BACTROBAN [Concomitant]
     Route: 061
  116. ACCOLATE [Suspect]
     Route: 048
     Dates: start: 20080719, end: 20080724
  117. ACCOLATE [Suspect]
     Route: 048
     Dates: start: 20091005, end: 20091123
  118. ACCOLATE [Suspect]
     Route: 048
     Dates: start: 20091021, end: 20091110
  119. ACCOLATE [Suspect]
     Route: 048
     Dates: start: 20091110, end: 20100916
  120. IMDUR [Concomitant]
     Route: 048
     Dates: start: 20091005, end: 20100205
  121. OMEPRAZOLE [Concomitant]
     Route: 048
     Dates: start: 20100310
  122. FUROSEMIDE [Concomitant]
     Route: 048
     Dates: start: 20100618, end: 20100901
  123. EXFORGE [Concomitant]
     Dosage: 5/60 MG ONCE  A DAY
     Route: 048
     Dates: start: 20080724, end: 20090203
  124. EXFORGE [Concomitant]
     Dosage: 5/60 MG ONCE  A DAY
     Route: 048
     Dates: start: 20090313, end: 20090317
  125. PROPOXYPHENE-ACETAMIN NAPSYLATE [Concomitant]
     Route: 048
     Dates: start: 20091005, end: 20100224
  126. PROPOXYPHENE-ACETAMIN NAPSYLATE [Concomitant]
     Route: 048
     Dates: start: 20100224, end: 20100427
  127. LORAZEPAM [Concomitant]
     Dosage: ONE-TWO TABLETS EVERY DAY AS NEEDED
     Route: 048
     Dates: start: 20081010, end: 20081103
  128. LORAZEPAM [Concomitant]
     Dosage: ONE-TWO TABLETS EVERY DAY
     Route: 048
     Dates: start: 20081103, end: 20081204
  129. LORAZEPAM [Concomitant]
     Dosage: 1-2 TABLETS ONCE A DAY AS NEEDED
     Route: 048
     Dates: start: 20100104, end: 20100310
  130. AMITRIPTYLINE HCL [Concomitant]
     Route: 048
     Dates: start: 20100224, end: 20100901
  131. AMOXICILLIN [Concomitant]
     Dosage: 4 DF PRIOR TO  DENTAL PROCEDURE
     Route: 048
     Dates: start: 20090429, end: 20090804
  132. ALBUTEROL SULFATE HF [Concomitant]
     Dosage: TWO PUFFS EVERY FOUR TO SIX HOURS
     Route: 055
     Dates: start: 20090804, end: 20091005
  133. DICYCLOMINE [Concomitant]
     Route: 048
     Dates: start: 20090203, end: 20090804
  134. CELEXA [Concomitant]
     Route: 048
     Dates: start: 20090430, end: 20090804
  135. PRAVASTATIN [Concomitant]
     Route: 048
     Dates: start: 20090602, end: 20100507
  136. TESSALON [Concomitant]
     Route: 048
     Dates: start: 20091005, end: 20091021
  137. IMDUR [Concomitant]
     Route: 048
     Dates: start: 20100205, end: 20100802
  138. OMEPRAZOLE [Concomitant]
     Route: 048
     Dates: start: 20091110, end: 20100310
  139. FUROSEMIDE [Concomitant]
     Route: 048
     Dates: start: 20100329, end: 20100618
  140. ISOSORBIDE MONONITRATE [Concomitant]
     Route: 048
     Dates: start: 20090302, end: 20091005
  141. PRAVACHOL [Concomitant]
     Route: 048
     Dates: start: 20081009, end: 20090203
  142. PROPOXYPHENE-ACETAMIN NAPSYLATE [Concomitant]
     Route: 048
     Dates: start: 20081103, end: 20081216
  143. PROPOXYPHENE-ACETAMIN NAPSYLATE [Concomitant]
     Route: 048
     Dates: start: 20081216, end: 20090203
  144. PROPOXYPHENE-ACETAMIN NAPSYLATE [Concomitant]
     Route: 048
     Dates: start: 20090804, end: 20091005
  145. HYZAAR [Concomitant]
     Dosage: 12.5/50 MG ONCE A ADY
     Route: 048
     Dates: start: 20090313, end: 20090317
  146. LORAZEPAM [Concomitant]
     Dosage: ONE-TWO TABLETS EVERY DAY AS NEEDED
     Route: 048
     Dates: start: 20080822, end: 20081010
  147. LORAZEPAM [Concomitant]
     Dosage: ONE-TWO TABLETS EVERY DAY AS NEEDED
     Route: 048
     Dates: start: 20081103, end: 20081204
  148. LORAZEPAM [Concomitant]
     Dosage: 1-2 TABLETS ONCE A DAY AS NEEDED
     Route: 048
     Dates: start: 20090522, end: 20090804
  149. LORAZEPAM [Concomitant]
     Dosage: ONE-TWO TABLETS EVERY DAY
     Route: 048
     Dates: start: 20090814, end: 20090921
  150. LORAZEPAM [Concomitant]
     Dosage: 1-2 TABLETS ONCE A DAY AS NEEDED
     Route: 048
     Dates: start: 20090921, end: 20091111
  151. LORAZEPAM [Concomitant]
     Dosage: 1-2 TABLETS ONCE A DAY AS NEEDED
     Route: 048
     Dates: start: 20100310, end: 20100409
  152. LORAZEPAM [Concomitant]
     Dosage: 1-2 TABLETS ONCE A DAY AS NEEDED
     Route: 048
     Dates: start: 20100409, end: 20100427
  153. LORAZEPAM [Concomitant]
     Dosage: ONE-TWO TABLETS EVERY DAY
     Route: 048
     Dates: start: 20100427, end: 20100706
  154. LORAZEPAM [Concomitant]
     Dosage: 1-2 TABLETS ONCE A DAY AS NEEDED
     Route: 048
     Dates: start: 20100427, end: 20100706
  155. LORAZEPAM [Concomitant]
     Dosage: 1-2 TABLETS ONCE A DAY AS NEEDED
     Route: 048
     Dates: start: 20100706, end: 20100910
  156. AMITRIPTYLINE HCL [Concomitant]
     Route: 048
     Dates: start: 20090504, end: 20090804
  157. AMITRIPTYLINE HCL [Concomitant]
     Route: 048
     Dates: start: 20090820, end: 20091005
  158. AMITRIPTYLINE HCL [Concomitant]
     Route: 048
     Dates: start: 20100210, end: 20100224
  159. AMOXIL [Concomitant]
     Route: 048
     Dates: start: 20091110, end: 20091123
  160. ALBUTEROL SULFATE HF [Concomitant]
     Dosage: AS NEEDED
     Route: 055
     Dates: start: 20090804, end: 20091005
  161. ALUPENT [Concomitant]
     Dosage: AS NEEDED
     Dates: start: 20080920, end: 20081117
  162. DARVOCET-N 50 [Concomitant]
     Route: 048
     Dates: start: 20090325, end: 20090417
  163. IPRATROPIUM BROMIDE [Concomitant]
     Route: 055
     Dates: start: 20090203, end: 20090804
  164. XOPENEX HFA [Concomitant]
     Dosage: AS NEEDED
     Dates: start: 20090203, end: 20090416
  165. DICYCLOMINE [Concomitant]
     Route: 048
     Dates: start: 20100927
  166. SINGULAIR [Concomitant]
     Route: 048
     Dates: start: 20090224, end: 20090804
  167. ZESTORETIC [Concomitant]
     Dosage: 12.5/20 MG DAILY
     Route: 048
     Dates: start: 20090317, end: 20090330
  168. CELEXA [Concomitant]
     Dosage: TAKE AFTER DINNER
     Route: 048
     Dates: start: 20090430, end: 20090804
  169. TESSALON [Concomitant]
     Route: 048
     Dates: start: 20091110, end: 20091123
  170. TESSALON [Concomitant]
     Route: 048
     Dates: start: 20091110, end: 20091123
  171. ACCOLATE [Suspect]
     Route: 048
     Dates: start: 20080724, end: 20081024
  172. FUROSEMIDE [Concomitant]
     Route: 048
     Dates: start: 20080710, end: 20090203
  173. PRAVACHOL [Concomitant]
     Route: 048
     Dates: start: 20080724, end: 20081009
  174. PROPOXYPHENE-ACETAMIN NAPSYLATE [Concomitant]
     Dosage: 650/100 MG TWO TIMES A DAY
     Route: 048
     Dates: start: 20100427
  175. LORAZEPAM [Concomitant]
     Dosage: 1-2 TABLETS ONCE A DAY AS NEEDED
     Route: 048
     Dates: start: 20091111, end: 20100104
  176. AMITRIPTYLINE HCL [Concomitant]
     Route: 048
     Dates: start: 20091005, end: 20100210
  177. AMITRIPTYLINE HCL [Concomitant]
     Route: 048
     Dates: start: 20091005, end: 20091123
  178. AMOXIL [Concomitant]
     Dosage: 4 DF AS ONE DOSE AS DIRECTED
     Route: 048
     Dates: start: 20101014
  179. DARVOCET-N 50 [Concomitant]
     Dosage: ONE TABLET FOUR TO SIX HOURS
     Route: 048
     Dates: start: 20090325, end: 20090417
  180. CELEXA [Concomitant]
     Dosage: TAKE AFTER DINNER
     Route: 048
     Dates: start: 20090813, end: 20091109
  181. CELEXA [Concomitant]
     Route: 048
     Dates: start: 20091109, end: 20091110
  182. DUONEB [Concomitant]
     Dosage: 2.5/0.5 MG/3 4 TIMES A DAY
     Dates: start: 20090804, end: 20090804

REACTIONS (14)
  - LABILE BLOOD PRESSURE [None]
  - URINE ODOUR ABNORMAL [None]
  - CHRONIC OBSTRUCTIVE PULMONARY DISEASE [None]
  - CORONARY ARTERIAL STENT INSERTION [None]
  - LOSS OF CONSCIOUSNESS [None]
  - HEART RATE IRREGULAR [None]
  - MACULAR DEGENERATION [None]
  - BACK PAIN [None]
  - HEART VALVE CALCIFICATION [None]
  - HEART VALVE INCOMPETENCE [None]
  - CARDIAC FAILURE CONGESTIVE [None]
  - SYNCOPE [None]
  - BLINDNESS [None]
  - RADIOTHERAPY [None]
